FAERS Safety Report 7313859-5 (Version None)
Quarter: 2011Q1

REPORT INFORMATION
  Report Type: 
  Country: None (occurrence: None)
  Receive Date: 20110225
  Receipt Date: 20110209
  Transmission Date: 20110831
  Serious: Yes (Other)
  Sender: FDA-Public Use
  Company Number: CH-SANOFI-AVENTIS-2011SA008508

PATIENT
  Age: 62 Year
  Sex: Female

DRUGS (5)
  1. IRFEN [Interacting]
     Indication: SCIATICA
     Route: 048
     Dates: start: 20110117, end: 20110120
  2. XANAX [Concomitant]
     Route: 048
  3. MULTAQ [Suspect]
     Route: 048
     Dates: start: 20100608
  4. PANTOZOL [Interacting]
     Indication: GASTRITIS EROSIVE
     Route: 048
     Dates: start: 20110117, end: 20110120
  5. DAFALGAN [Concomitant]
     Route: 048

REACTIONS (4)
  - DRUG INTERACTION [None]
  - TACHYCARDIA PAROXYSMAL [None]
  - PALPITATIONS [None]
  - DYSPNOEA [None]
